FAERS Safety Report 10004202 (Version 1)
Quarter: 2014Q1

REPORT INFORMATION
  Report Type: Spontaneous
  Country: US (occurrence: US)
  Receive Date: 20140312
  Receipt Date: 20140312
  Transmission Date: 20141002
  Serious: No
  Sender: FDA-Public Use
  Company Number: US-INCYTE CORPORATION-2014IN000344

PATIENT
  Age: 83 Year
  Sex: Male

DRUGS (4)
  1. JAKAFI [Suspect]
     Indication: MYELOFIBROSIS
     Dosage: 5 MG, BID
     Route: 048
     Dates: start: 201312
  2. SPIRIVA [Concomitant]
  3. MULTIVITAMINS [Concomitant]
  4. GLUCOSAMINE CHONDROITIN            /01625901/ [Concomitant]

REACTIONS (4)
  - Blister [Unknown]
  - Hyperhidrosis [Unknown]
  - Skin irritation [Unknown]
  - Anaemia [Unknown]
